FAERS Safety Report 4471543-X (Version None)
Quarter: 2004Q4

REPORT INFORMATION
  Report Type: 
  Country: None (occurrence: None)
  Receive Date: 20041012
  Receipt Date: 20041001
  Transmission Date: 20050328
  Serious: Yes (Hospitalization, Other)
  Sender: FDA-Public Use
  Company Number: DE-ABBOTT-04P-062-0276459-00

PATIENT
  Age: 74 Year
  Sex: Female

DRUGS (1)
  1. SEVORANE LIQUID FOR INHALATION [Suspect]
     Indication: ANAESTHESIA
     Route: 055
     Dates: start: 20040809

REACTIONS (2)
  - HEPATITIS [None]
  - RENAL FAILURE [None]
